FAERS Safety Report 4658696-5 (Version None)
Quarter: 2005Q2

REPORT INFORMATION
  Report Type: 
  Country: None (occurrence: None)
  Receive Date: 20050509
  Receipt Date: 20050425
  Transmission Date: 20051028
  Serious: Yes (Hospitalization)
  Sender: FDA-Public Use
  Company Number: DSA_26356_2005

PATIENT
  Age: 88 Year
  Sex: Female

DRUGS (6)
  1. LORAZEPAM [Suspect]
     Indication: INSOMNIA
     Dosage: DF ONCE PO
     Route: 048
     Dates: start: 20050318, end: 20050318
  2. LORAZEPAM [Suspect]
     Indication: INSOMNIA
     Dosage: 1 MG Q DAY PO
     Route: 048
     Dates: end: 20050319
  3. AMLODIN [Concomitant]
  4. MUCOSTA [Concomitant]
  5. SIGMART [Concomitant]
  6. SENNOSIDE [Concomitant]

REACTIONS (5)
  - BODY TEMPERATURE DECREASED [None]
  - DEPRESSED LEVEL OF CONSCIOUSNESS [None]
  - INCORRECT DOSE ADMINISTERED [None]
  - MOVEMENT DISORDER [None]
  - SPEECH DISORDER [None]
